FAERS Safety Report 11406870 (Version 1)
Quarter: 2015Q3

REPORT INFORMATION
  Report Type: Spontaneous
  Country: US (occurrence: US)
  Receive Date: 20150821
  Receipt Date: 20150821
  Transmission Date: 20151125
  Serious: Yes (Death, Other)
  Sender: FDA-Public Use
  Company Number: US-BAXTER-2015BAX045462

PATIENT
  Age: 4 Day
  Sex: Male

DRUGS (2)
  1. MILRINONE LACTATE IN 5% DEXTROSE INJECTION [Suspect]
     Active Substance: MILRINONE LACTATE
     Indication: HAEMODYNAMIC INSTABILITY
     Route: 042
  2. GANCICLOVIR. [Suspect]
     Active Substance: GANCICLOVIR
     Indication: HUMAN HERPESVIRUS 6 INFECTION
     Route: 042

REACTIONS (6)
  - Neonatal respiratory distress syndrome [Unknown]
  - Death [Fatal]
  - Condition aggravated [Unknown]
  - Drug ineffective [Unknown]
  - Sepsis [Unknown]
  - Intestinal ischaemia [Unknown]
